FAERS Safety Report 5007838-0 (Version None)
Quarter: 2006Q2

REPORT INFORMATION
  Report Type: 
  Country: None (occurrence: None)
  Receive Date: 20060522
  Receipt Date: 20051107
  Transmission Date: 20061013
  Serious: Yes (Death)
  Sender: FDA-Public Use
  Company Number: FR-BRISTOL-MYERS SQUIBB COMPANY-13171186

PATIENT
  Age: 54 Year
  Sex: Male
  Weight: 66 kg

DRUGS (7)
  1. ABILIFY [Suspect]
     Indication: DELUSION
     Route: 048
     Dates: start: 20050818
  2. SEROPLEX [Suspect]
     Indication: DEPRESSION
     Route: 048
     Dates: start: 20050927
  3. NOZINAN [Concomitant]
     Indication: ANXIETY
     Route: 048
     Dates: start: 20010906
  4. SERESTA [Concomitant]
     Indication: ANXIETY
     Route: 048
     Dates: start: 20040204
  5. SERESTA [Concomitant]
     Route: 048
     Dates: start: 20020731
  6. MEPRONIZINE [Concomitant]
     Indication: INSOMNIA
     Route: 048
     Dates: start: 20050415
  7. CODOLIPRANE [Concomitant]
     Indication: PAIN
     Route: 048
     Dates: start: 20050927

REACTIONS (2)
  - COMPLETED SUICIDE [None]
  - PAIN [None]
